FAERS Safety Report 9387153 (Version 1)
Quarter: 2013Q3

REPORT INFORMATION
  Report Type: Spontaneous
  Country: TR (occurrence: TR)
  Receive Date: 20130708
  Receipt Date: 20130708
  Transmission Date: 20140515
  Serious: Yes (Other)
  Sender: FDA-Public Use
  Company Number: TR-MYLANLABS-2013S1014255

PATIENT
  Age: 16 Year
  Sex: Female

DRUGS (1)
  1. ACICLOVIR [Suspect]
     Indication: ENCEPHALITIS
     Dosage: 1500MG/M2/DAY IN 3 DIVIDED DOSES
     Route: 042

REACTIONS (3)
  - Renal failure acute [Recovering/Resolving]
  - Tubulointerstitial nephritis [Unknown]
  - Renal tubular necrosis [Unknown]
